FAERS Safety Report 21240280 (Version 1)
Quarter: 2022Q3

REPORT INFORMATION
  Report Type: Spontaneous
  Country: US (occurrence: None)
  Receive Date: 20220819
  Receipt Date: 20220819
  Transmission Date: 20221027
  Serious: Yes (Hospitalization)
  Sender: FDA-Public Use
  Company Number: None

PATIENT
  Sex: Female

DRUGS (6)
  1. TRULICITY [Suspect]
     Active Substance: DULAGLUTIDE
     Indication: Type 2 diabetes mellitus
     Dosage: 3MG/0.5ML?INJECT 3 MG UNDER THE SKIN (SUBCUTANEOUS INJECTION) EVERY WEEK?
     Route: 058
     Dates: start: 20210903
  2. ASPIRIN LOW TAB 81MG EC [Concomitant]
  3. ATORVASTATIN [Concomitant]
     Active Substance: ATORVASTATIN
  4. ESCITALOPRAM TAB 20MG [Concomitant]
  5. GLIMEPIRIDE TAB 2MG [Concomitant]
  6. METFORMIN TAB 1000MG [Concomitant]

REACTIONS (1)
  - Hospitalisation [None]
